FAERS Safety Report 10478993 (Version 1)
Quarter: 2014Q3

REPORT INFORMATION
  Report Type: Spontaneous
  Country: US (occurrence: US)
  Receive Date: 20140926
  Receipt Date: 20140926
  Transmission Date: 20150326
  Serious: Yes (Disabling, Other)
  Sender: FDA-Public Use
  Company Number: US-ASTRAZENECA-2014SE70321

PATIENT
  Age: 51 Year
  Sex: Male
  Weight: 136.1 kg

DRUGS (6)
  1. PENTASA [Concomitant]
     Active Substance: MESALAMINE
     Indication: CROHN^S DISEASE
     Dosage: 2-4 TIMES DAILY
     Route: 048
  2. OMEPRAZOLE. [Suspect]
     Active Substance: OMEPRAZOLE
     Indication: BARRETT^S OESOPHAGUS
     Route: 048
     Dates: start: 2006
  3. SPIRIVA [Concomitant]
     Active Substance: TIOTROPIUM BROMIDE MONOHYDRATE
     Route: 055
  4. LEVOTHYROXINE [Concomitant]
     Active Substance: LEVOTHYROXINE
     Indication: HYPOTHYROIDISM
     Route: 048
  5. DULERA AERO [Concomitant]
     Indication: CHRONIC OBSTRUCTIVE PULMONARY DISEASE
     Dosage: 100-5MCG, 1 PUFF BID
     Route: 055
     Dates: start: 201405
  6. SYMBICORT [Suspect]
     Active Substance: BUDESONIDE\FORMOTEROL FUMARATE DIHYDRATE
     Indication: CHRONIC OBSTRUCTIVE PULMONARY DISEASE
     Dosage: 160/4.5 MCG, 1 PUFF BID
     Route: 055
     Dates: start: 2013, end: 201405

REACTIONS (13)
  - Cardiac disorder [Unknown]
  - Gait disturbance [Unknown]
  - Diabetes mellitus [Unknown]
  - Off label use [Not Recovered/Not Resolved]
  - Intentional product misuse [Unknown]
  - Dyspnoea [Unknown]
  - Coronary artery occlusion [Unknown]
  - Pain [Not Recovered/Not Resolved]
  - Crohn^s disease [Unknown]
  - Sleep apnoea syndrome [Unknown]
  - Myocardial infarction [Unknown]
  - Hiatus hernia [Unknown]
  - Hypothyroidism [Unknown]

NARRATIVE: CASE EVENT DATE: 2008
